FAERS Safety Report 12443751 (Version 1)
Quarter: 2016Q2

REPORT INFORMATION
  Report Type: Spontaneous
  Country: ZA (occurrence: ZA)
  Receive Date: 20160607
  Receipt Date: 20160607
  Transmission Date: 20160815
  Serious: Yes (Hospitalization)
  Sender: FDA-Public Use
  Company Number: ZA-MYLANLABS-2016M1022833

PATIENT

DRUGS (8)
  1. PURESIS [Concomitant]
     Active Substance: FUROSEMIDE
     Indication: FLUID RETENTION
     Dosage: 40 MG, QD
  2. DIAGLUCIDE [Concomitant]
     Indication: DIABETES MELLITUS
     Dosage: 80 MG, QD
  3. NORMOSPOR [Concomitant]
     Indication: FUNGAL INFECTION
     Dosage: UNK, QD
  4. INDAPAMIDE MYLAN [Suspect]
     Active Substance: INDAPAMIDE
     Indication: BLOOD PRESSURE INCREASED
     Dosage: UNK, QD
  5. DISPRIN [Concomitant]
     Active Substance: ASPIRIN
     Indication: ANTICOAGULANT THERAPY
     Dosage: 300 MG, QD
  6. EPILIM [Concomitant]
     Active Substance: VALPROATE SODIUM
     Indication: EPILEPSY
     Dosage: UNK, BID
  7. ENAP                               /00574902/ [Concomitant]
     Indication: BLOOD PRESSURE INCREASED
     Dosage: 5 MG, QD
  8. CIPLATEC [Concomitant]
     Indication: CARDIAC FAILURE
     Dosage: 20 MG, QD

REACTIONS (1)
  - Renal function test abnormal [Unknown]

NARRATIVE: CASE EVENT DATE: 20150121
